FAERS Safety Report 13679376 (Version 1)
Quarter: 2017Q2

REPORT INFORMATION
  Report Type: Spontaneous
  Country: US (occurrence: US)
  Receive Date: 20170622
  Receipt Date: 20170622
  Transmission Date: 20170830
  Serious: Yes (Death, Other)
  Sender: FDA-Public Use
  Company Number: US-CELGENEUS-USA-20170605773

PATIENT
  Sex: Female

DRUGS (6)
  1. GEMCITABINE [Suspect]
     Active Substance: GEMCITABINE\GEMCITABINE HYDROCHLORIDE
     Indication: ADENOCARCINOMA PANCREAS
     Dosage: 1000 MILLIGRAM/SQ. METER
     Route: 041
  2. GEMCITABINE [Suspect]
     Active Substance: GEMCITABINE\GEMCITABINE HYDROCHLORIDE
     Dosage: 800 MILLIGRAM/SQ. METER
     Route: 041
  3. GEMCITABINE [Suspect]
     Active Substance: GEMCITABINE\GEMCITABINE HYDROCHLORIDE
     Dosage: 900 MILLIGRAM/SQ. METER
     Route: 041
  4. PEMBROLIZUMAB. [Suspect]
     Active Substance: PEMBROLIZUMAB
     Indication: ADENOCARCINOMA PANCREAS
     Dosage: 2 MILLIGRAM/KILOGRAM
     Route: 041
  5. ABRAXANE [Suspect]
     Active Substance: PACLITAXEL
     Indication: ADENOCARCINOMA PANCREAS
     Dosage: 125 MILLIGRAM/SQ. METER
     Route: 041
  6. GEMCITABINE [Suspect]
     Active Substance: GEMCITABINE\GEMCITABINE HYDROCHLORIDE
     Dosage: 600 MILLIGRAM/SQ. METER
     Route: 041

REACTIONS (11)
  - Death [Fatal]
  - Thrombocytopenia [Unknown]
  - Fatigue [Unknown]
  - Neutropenia [Unknown]
  - Stomatitis [Unknown]
  - Anaemia [Unknown]
  - Pyrexia [Unknown]
  - White blood cell count decreased [Unknown]
  - Epistaxis [Unknown]
  - Presyncope [Unknown]
  - Alanine aminotransferase increased [Unknown]
